FAERS Safety Report 15417463 (Version 1)
Quarter: 2018Q3

REPORT INFORMATION
  Report Type: Spontaneous
  Country: US (occurrence: US)
  Receive Date: 20180924
  Receipt Date: 20180924
  Transmission Date: 20181010
  Serious: No
  Sender: FDA-Public Use
  Company Number: US-JNJFOC-20180835139

PATIENT
  Age: 61 Year
  Sex: Female
  Weight: 104.9 kg

DRUGS (15)
  1. DOXIL [Suspect]
     Active Substance: DOXORUBICIN HYDROCHLORIDE
     Indication: ENDOMETRIAL CANCER
     Dosage: 30 MG PER METER SQUARE/ VIAL
     Route: 042
     Dates: start: 20180725
  2. XANAX [Concomitant]
     Active Substance: ALPRAZOLAM
     Route: 065
  3. PROTONIX [Concomitant]
     Active Substance: PANTOPRAZOLE SODIUM
     Route: 065
  4. CLARITIN [Concomitant]
     Active Substance: LORATADINE
     Route: 065
  5. CARBOPLATINUM [Suspect]
     Active Substance: CARBOPLATIN
     Indication: ENDOMETRIAL CANCER
     Route: 065
     Dates: start: 20180725
  6. WELLBUTRIN [Concomitant]
     Active Substance: BUPROPION HYDROCHLORIDE
     Route: 065
  7. VITAMIN D [Concomitant]
     Active Substance: CHOLECALCIFEROL
     Route: 065
  8. ZOLOFT [Concomitant]
     Active Substance: SERTRALINE HYDROCHLORIDE
     Route: 065
  9. PROVENTIL [Concomitant]
     Active Substance: ALBUTEROL
     Route: 065
  10. TAMOXIFEN [Concomitant]
     Active Substance: TAMOXIFEN
     Route: 065
  11. IBUPROFEN. [Concomitant]
     Active Substance: IBUPROFEN
     Route: 065
  12. ABILIFY [Concomitant]
     Active Substance: ARIPIPRAZOLE
     Route: 065
  13. ADVAIR HFA [Concomitant]
     Active Substance: FLUTICASONE PROPIONATE\SALMETEROL XINAFOATE
     Route: 065
  14. BUSPAR [Concomitant]
     Active Substance: BUSPIRONE HYDROCHLORIDE
     Route: 065
  15. SINGULAIR [Concomitant]
     Active Substance: MONTELUKAST SODIUM
     Route: 065

REACTIONS (5)
  - Skin discolouration [Not Recovered/Not Resolved]
  - Extravasation [Not Recovered/Not Resolved]
  - Off label use [Unknown]
  - Product use in unapproved indication [Unknown]
  - Chest discomfort [Not Recovered/Not Resolved]

NARRATIVE: CASE EVENT DATE: 20180725
